FAERS Safety Report 5239514-3 (Version None)
Quarter: 2007Q1

REPORT INFORMATION
  Report Type: 
  Country: None (occurrence: None)
  Receive Date: 20070216
  Receipt Date: 20070212
  Transmission Date: 20070707
  Serious: Yes (Disabling)
  Sender: FDA-Public Use
  Company Number: US-PURDUE-USA_2007_0026470

PATIENT
  Age: 48 Year
  Sex: Male

DRUGS (3)
  1. OXYCONTIN [Suspect]
     Indication: PAIN
     Dosage: UNK UNK, UNK
     Route: 065
  2. MORPHINE SULFATE [Suspect]
     Indication: PAIN
     Dosage: UNK UNK, UNK
     Route: 065
  3. VICODIN [Suspect]
     Indication: PAIN
     Dosage: UNK UNK, UNK
     Route: 065

REACTIONS (4)
  - BEDRIDDEN [None]
  - IMPAIRED DRIVING ABILITY [None]
  - MEMORY IMPAIRMENT [None]
  - VISUAL DISTURBANCE [None]
